FAERS Safety Report 5999185-5 (Version None)
Quarter: 2008Q4

REPORT INFORMATION
  Report Type: 
  Country: None (occurrence: None)
  Receive Date: 20081211
  Receipt Date: 20081201
  Transmission Date: 20090506
  Serious: Yes (Hospitalization)
  Sender: FDA-Public Use
  Company Number: 2008S1000507

PATIENT
  Age: 55 Year
  Sex: Female
  Weight: 100.6985 kg

DRUGS (6)
  1. SORIATANE [Suspect]
     Indication: PSORIASIS
     Dosage: 25 MG; BID; PO
     Route: 048
     Dates: start: 20081010, end: 20081104
  2. PREMPRO [Suspect]
     Indication: HORMONE REPLACEMENT THERAPY
     Dosage: QD; PO
     Route: 048
     Dates: end: 20040101
  3. ZOLOFT [Suspect]
     Indication: DEPRESSION
     Dosage: 50 MG; QD; PO
     Route: 048
     Dates: start: 20040101
  4. ZOLOFT [Suspect]
     Indication: INSOMNIA
     Dosage: 50 MG; QD; PO
     Route: 048
     Dates: start: 20040101
  5. ELAVIL [Suspect]
     Indication: DEPRESSION
     Dosage: 10 MG; QD
     Dates: start: 20081001
  6. ELAVIL [Suspect]
     Indication: INSOMNIA
     Dosage: 10 MG; QD
     Dates: start: 20081001

REACTIONS (7)
  - DRY SKIN [None]
  - ERYTHEMA [None]
  - LIP DRY [None]
  - PAIN IN EXTREMITY [None]
  - PULMONARY EMBOLISM [None]
  - PULMONARY THROMBOSIS [None]
  - TENDON DISORDER [None]
